FAERS Safety Report 6898022-4 (Version None)
Quarter: 2010Q3

REPORT INFORMATION
  Report Type: 
  Country: None (occurrence: None)
  Receive Date: 20100802
  Receipt Date: 20070827
  Transmission Date: 20110219
  Serious: Yes (Other)
  Sender: FDA-Public Use
  Company Number: US-PFIZER INC-2007060227

PATIENT
  Sex: Male
  Weight: 92.1 kg

DRUGS (7)
  1. LYRICA [Suspect]
     Indication: PAIN
     Route: 048
     Dates: start: 20070709
  2. GLYBURIDE [Concomitant]
  3. ATENOLOL [Concomitant]
  4. LOTENSIN [Concomitant]
  5. ACETYLSALICYLIC ACID SRT [Concomitant]
  6. VITAMINS [Concomitant]
  7. LORAZEPAM [Concomitant]

REACTIONS (5)
  - BALANCE DISORDER [None]
  - BLOOD GLUCOSE DECREASED [None]
  - DRY MOUTH [None]
  - SOMNOLENCE [None]
  - VISION BLURRED [None]
